FAERS Safety Report 7530941-8 (Version None)
Quarter: 2011Q2

REPORT INFORMATION
  Report Type: 
  Country: None (occurrence: None)
  Receive Date: 20110608
  Receipt Date: 20110525
  Transmission Date: 20111010
  Serious: Yes (Hospitalization)
  Sender: FDA-Public Use
  Company Number: FR-RANBAXY-2011RR-45070

PATIENT
  Age: 69 Year
  Sex: Female

DRUGS (2)
  1. LEVOFLOXACIN [Suspect]
     Indication: SPONDYLITIS
     Dosage: UNK
     Route: 048
     Dates: start: 20110129, end: 20110223
  2. AMOXICILLIN [Suspect]
     Indication: SPONDYLITIS
     Dosage: UNK
     Route: 048
     Dates: start: 20110129, end: 20110223

REACTIONS (5)
  - PURPURA [None]
  - URTICARIA [None]
  - THROMBOCYTOPENIA [None]
  - PYREXIA [None]
  - BLOOD PRESSURE DECREASED [None]
